FAERS Safety Report 4747181-8 (Version None)
Quarter: 2005Q3

REPORT INFORMATION
  Report Type: 
  Country: None (occurrence: None)
  Receive Date: 20050815
  Receipt Date: 20050803
  Transmission Date: 20060218
  Serious: Yes (Death)
  Sender: FDA-Public Use
  Company Number: USA0507103707

PATIENT
  Age: 67 Year
  Sex: Female
  Weight: 111 kg

DRUGS (5)
  1. STRATTERA [Suspect]
     Indication: ATTENTION DEFICIT/HYPERACTIVITY DISORDER
     Dosage: 60 MG/2 DAY
     Dates: start: 20030101
  2. COREG [Concomitant]
  3. COZAAR [Concomitant]
  4. POTASSIUM [Concomitant]
  5. LASIX [Concomitant]

REACTIONS (1)
  - EJECTION FRACTION DECREASED [None]
